FAERS Safety Report 4554467-9 (Version None)
Quarter: 2005Q1

REPORT INFORMATION
  Report Type: 
  Country: None (occurrence: None)
  Receive Date: 20050114
  Receipt Date: 20031023
  Transmission Date: 20050727
  Serious: Yes (Death, Hospitalization)
  Sender: FDA-Public Use
  Company Number: GXKR2003GB00528

PATIENT
  Age: 82 Year
  Sex: Female

DRUGS (5)
  1. PARACETAMOL+CODEINE PHOSPHATE (NGX) (ACETAMINOPHEN (PARACETAMOL), CODE [Suspect]
  2. FUROSEMIDE+AMILORIDE HYDROCHLORIDE (NGX) (AMILORIDE, FUROSEMIDE) [Suspect]
  3. ACETYLSALICYLIC ACID (NGX) (ACETYLSALICYLIC ACID) [Suspect]
  4. CALCICHEW-D3 (CALCIUM CARBONATE, COLECALCIFEROL) [Suspect]
  5. IBUPROFEN [Suspect]

REACTIONS (6)
  - AORTIC ANEURYSM RUPTURE [None]
  - COMPLETED SUICIDE [None]
  - HEPATIC ENZYME INCREASED [None]
  - INTENTIONAL MISUSE [None]
  - PROTHROMBIN TIME PROLONGED [None]
  - SUICIDE ATTEMPT [None]
